FAERS Safety Report 15598244 (Version 1)
Quarter: 2018Q4

REPORT INFORMATION
  Report Type: Spontaneous
  Country: US (occurrence: US)
  Receive Date: 20181105
  Receipt Date: 20181105
  Transmission Date: 20190205
  Serious: No
  Sender: FDA-Public Use
  Company Number: None

PATIENT
  Age: 84 Year
  Sex: Female

DRUGS (1)
  1. FORTEO [Suspect]
     Active Substance: TERIPARATIDE
     Indication: ARTHROPATHY
     Dosage: AS DIRECTED
     Route: 058
     Dates: start: 201809

REACTIONS (2)
  - Pruritus [None]
  - Rash [None]
